FAERS Safety Report 5356486-1 (Version None)
Quarter: 2007Q2

REPORT INFORMATION
  Report Type: 
  Country: None (occurrence: None)
  Receive Date: 20070530
  Receipt Date: 20061109
  Transmission Date: 20071010
  Serious: Yes (Hospitalization)
  Sender: FDA-Public Use
  Company Number: US200608005807

PATIENT
  Age: 33 Year
  Sex: Male
  Weight: 72.1 kg

DRUGS (8)
  1. ZYPREXA [Suspect]
     Dosage: 10 MG
     Dates: start: 20010101, end: 20030101
  2. SEROQUEL [Concomitant]
  3. RISPERDAL [Concomitant]
  4. GEOGON      (ZIPRASIDONE HYDROCHLORIDE) [Concomitant]
  5. HALDOL SOLUTAB [Concomitant]
  6. DEPAKOTE [Concomitant]
  7. LITHIUM CARBONATE [Concomitant]
  8. SERTRALINE [Concomitant]

REACTIONS (3)
  - DIABETES MELLITUS [None]
  - PANCREATITIS [None]
  - SURGERY [None]
